FAERS Safety Report 9192316 (Version 2)
Quarter: 2013Q1

REPORT INFORMATION
  Report Type: Report from Study
  Country: CN (occurrence: CN)
  Receive Date: 20130327
  Receipt Date: 20130327
  Transmission Date: 20140127
  Serious: Yes (Hospitalization)
  Sender: FDA-Public Use
  Company Number: CN-MERCK-0803CHN00009

PATIENT
  Age: 68 Year
  Sex: Female
  Weight: 82 kg

DRUGS (8)
  1. NIACIN (+) LAROPIPRANT [Suspect]
     Indication: HIGH DENSITY LIPOPROTEIN DECREASED
     Dosage: 1 G/20 MG TABLET, 2 TABLETS QD
     Route: 048
     Dates: start: 20071225, end: 20080120
  2. MK-0524 [Suspect]
     Indication: HIGH DENSITY LIPOPROTEIN DECREASED
     Dosage: 20 MG-1 GM, QD
     Route: 048
     Dates: start: 20071107
  3. MK-0524 [Suspect]
     Dosage: 20 MG-2 GM, QD
     Route: 048
     Dates: end: 20071224
  4. VYTORIN [Suspect]
     Indication: HYPERCHOLESTEROLAEMIA
     Dosage: 10-40 MG , QD
     Route: 048
     Dates: start: 20071015
  5. SIMVASTATIN [Suspect]
     Indication: HYPERCHOLESTEROLAEMIA
     Dosage: 40 MG, QD
     Route: 048
     Dates: start: 20070917
  6. ISOSORBIDE DINITRATE [Concomitant]
  7. ASPIRIN [Concomitant]
  8. METOPROLOL [Concomitant]

REACTIONS (1)
  - Palpitations [Recovered/Resolved]
